FAERS Safety Report 5667315-0 (Version None)
Quarter: 2008Q1

REPORT INFORMATION
  Report Type: 
  Country: None (occurrence: None)
  Receive Date: 20080315
  Receipt Date: 20080214
  Transmission Date: 20080703
  Serious: No
  Sender: FDA-Public Use
  Company Number: US-ABBOTT-08P-163-0434292-00

PATIENT
  Sex: Female
  Weight: 52.21 kg

DRUGS (7)
  1. HUMIRA [Suspect]
     Indication: RHEUMATOID ARTHRITIS
     Route: 058
     Dates: start: 20070801, end: 20080129
  2. CELECOXIB [Concomitant]
     Indication: ARTHRITIS
     Route: 048
     Dates: start: 20020101
  3. ISOPRENALINE HYDROCHLORIDE [Concomitant]
     Indication: DRUG USE FOR UNKNOWN INDICATION
  4. GENERIC PILL FOR REFLUX [Concomitant]
     Indication: DRUG USE FOR UNKNOWN INDICATION
  5. ALPRAZOLAM [Concomitant]
     Indication: ANXIETY
     Route: 048
     Dates: start: 20070101
  6. LORATADINE [Concomitant]
     Indication: DRUG USE FOR UNKNOWN INDICATION
     Route: 048
     Dates: start: 20080101
  7. PREDNISONE [Concomitant]
     Indication: DRUG USE FOR UNKNOWN INDICATION
     Route: 048
     Dates: start: 20080201

REACTIONS (3)
  - DRUG INEFFECTIVE [None]
  - HYPERSENSITIVITY [None]
  - RASH GENERALISED [None]
